FAERS Safety Report 20917824 (Version 1)
Quarter: 2022Q2

REPORT INFORMATION
  Report Type: Report from Study
  Country: KR (occurrence: KR)
  Receive Date: 20220606
  Receipt Date: 20220606
  Transmission Date: 20220721
  Serious: Yes (Death, Other)
  Sender: FDA-Public Use
  Company Number: KR-BRISTOL-MYERS SQUIBB COMPANY-2022-050150

PATIENT
  Age: 65 Year
  Sex: Male

DRUGS (2)
  1. OPDIVO [Suspect]
     Active Substance: NIVOLUMAB
     Indication: Leiomyosarcoma
     Dosage: 1OO/10 MG/ML
     Route: 042
     Dates: start: 20220506, end: 20220506
  2. YERVOY [Suspect]
     Active Substance: IPILIMUMAB
     Indication: Leiomyosarcoma
     Dosage: 100/10MG/ML ONCE
     Route: 042
     Dates: start: 20220506, end: 20220506

REACTIONS (2)
  - Death [Fatal]
  - Intentional product use issue [Unknown]
